FAERS Safety Report 15589850 (Version 2)
Quarter: 2018Q4

REPORT INFORMATION
  Report Type: Spontaneous
  Country: BR (occurrence: BR)
  Receive Date: 20181106
  Receipt Date: 20181114
  Transmission Date: 20190205
  Serious: Yes (Other)
  Sender: FDA-Public Use
  Company Number: BR-ABBVIE-18P-020-2545847-00

PATIENT
  Sex: Female
  Weight: 46 kg

DRUGS (4)
  1. HIDANTAL [Concomitant]
     Active Substance: PHENYTOIN SODIUM
     Indication: SEIZURE
     Dosage: FREQUENCY: MORNING/ AFTERNOON/ NIGHT;; DAILY DOSE: 2.5 TABLET; STARTED BEFORE DEPAKENE
     Route: 048
  2. DEPAKENE [Suspect]
     Active Substance: VALPROIC ACID
     Indication: SEIZURE
     Dosage: FREQUENCY: MORNING/ AFTERNOON/ NIGHT; DAILY DOSE: 6 TABLETS;
     Route: 048
  3. DEPAKENE [Suspect]
     Active Substance: VALPROIC ACID
     Indication: SEIZURE
     Dosage: DOSE: DOESN^T REMEMBER; DOSE ADJUSTED ACCORDING TO SEVERITY OF THE SEIZURE CRISIS
     Route: 048
  4. PRIMID [Concomitant]
     Indication: SEIZURE
     Dosage: ONGOING; START DATE: DOESN^T REMEMBER; DAILY DOSE: 6 TABLET; STARTED BEFORE DEPAKENE
     Route: 048

REACTIONS (3)
  - Product use issue [Unknown]
  - Seizure [Recovered/Resolved]
  - Off label use [Unknown]
